FAERS Safety Report 13546828 (Version 1)
Quarter: 2017Q2

REPORT INFORMATION
  Report Type: Spontaneous
  Country: US (occurrence: US)
  Receive Date: 20170515
  Receipt Date: 20170515
  Transmission Date: 20170830
  Serious: Yes (Other)
  Sender: FDA-Public Use
  Company Number: US-MYLANLABS-2017M1029035

PATIENT

DRUGS (3)
  1. OXAZEPAM. [Interacting]
     Active Substance: OXAZEPAM
     Indication: HUNTINGTON^S DISEASE
     Dosage: 75 MG, QD
  2. CLOZAPINE. [Interacting]
     Active Substance: CLOZAPINE
     Indication: HUNTINGTON^S DISEASE
     Dosage: 175 MG,
  3. DIAZEPAM. [Suspect]
     Active Substance: DIAZEPAM
     Indication: HUNTINGTON^S DISEASE
     Dosage: 6 MG, QD

REACTIONS (2)
  - Coma [Recovered/Resolved]
  - Drug interaction [Unknown]
